FAERS Safety Report 8074280-8 (Version None)
Quarter: 2012Q1

REPORT INFORMATION
  Report Type: 
  Country: None (occurrence: None)
  Receive Date: 20120126
  Receipt Date: 20120116
  Transmission Date: 20120608
  Serious: Yes (Hospitalization)
  Sender: FDA-Public Use
  Company Number: IT-MEDIMMUNE-MEDI-0014022

PATIENT
  Sex: Male

DRUGS (3)
  1. ETHYOL [Suspect]
     Dates: start: 20060101
  2. METOCLOPRAMIDE [Suspect]
  3. RADIOTHERAPY [Concomitant]

REACTIONS (3)
  - HYPERGLYCAEMIA [None]
  - HYPERTENSION [None]
  - STEVENS-JOHNSON SYNDROME [None]
